FAERS Safety Report 4398621-8 (Version None)
Quarter: 2004Q3

REPORT INFORMATION
  Report Type: 
  Country: None (occurrence: None)
  Receive Date: 20040712
  Receipt Date: 20040629
  Transmission Date: 20050211
  Serious: Yes (Other)
  Sender: FDA-Public Use
  Company Number: JP-JNJFOC-20031003790

PATIENT

DRUGS (4)
  1. RISPERDAL [Suspect]
     Indication: DRUG USE FOR UNKNOWN INDICATION
     Dosage: ORAL
     Route: 048
  2. DIAZEPAM [Suspect]
     Indication: DRUG USE FOR UNKNOWN INDICATION
     Dosage: ORAL
     Route: 048
  3. NITRAZEPAM [Suspect]
     Indication: DRUG USE FOR UNKNOWN INDICATION
     Dosage: ORAL
     Route: 048
  4. OTHER MEDICATIONS (UNKNOWN) ALL OTHER THERAPEUTIC PRODUCTS [Concomitant]

REACTIONS (7)
  - ANAEMIA MACROCYTIC [None]
  - BLOOD ALKALINE PHOSPHATASE DECREASED [None]
  - BLOOD FOLATE DECREASED [None]
  - HAEMOLYTIC ANAEMIA [None]
  - HAPTOGLOBIN DECREASED [None]
  - MYELODYSPLASTIC SYNDROME [None]
  - RETICULOCYTE COUNT INCREASED [None]
